APPROVED DRUG PRODUCT: CARDENE
Active Ingredient: NICARDIPINE HYDROCHLORIDE
Strength: 30MG **Federal Register determination that product was not discontinued or withdrawn for safety or effectiveness reasons**
Dosage Form/Route: CAPSULE;ORAL
Application: N019488 | Product #002
Applicant: CHIESI USA INC
Approved: Dec 21, 1988 | RLD: Yes | RS: No | Type: DISCN